FAERS Safety Report 8007391-3 (Version None)
Quarter: 2011Q4

REPORT INFORMATION
  Report Type: 
  Country: None (occurrence: None)
  Receive Date: 20111227
  Receipt Date: 20111227
  Transmission Date: 20120403
  Serious: Yes (Hospitalization)
  Sender: FDA-Public Use
  Company Number: NL-PFIZER INC-2011312217

PATIENT
  Age: 55 Year
  Sex: Male

DRUGS (4)
  1. DEPAKENE [Concomitant]
     Dosage: 300 MG, UNK
     Dates: start: 20110906
  2. CALCIUM CARBONATE [Concomitant]
     Dosage: 500 MG, UNK
     Dates: start: 20100721
  3. CITALOPRAM [Concomitant]
     Dosage: 20 MG, UNK
     Dates: start: 20110316
  4. VARENICLINE TARTRATE [Suspect]
     Indication: SMOKING CESSATION THERAPY
     Dosage: UNK
     Dates: start: 20111120, end: 20111123

REACTIONS (2)
  - MOVEMENT DISORDER [None]
  - APHASIA [None]
